FAERS Safety Report 6282119-6 (Version None)
Quarter: 2009Q3

REPORT INFORMATION
  Report Type: 
  Country: None (occurrence: None)
  Receive Date: 20090724
  Receipt Date: 20080911
  Transmission Date: 20100115
  Serious: Yes (Other)
  Sender: FDA-Public Use
  Company Number: US-KINGPHARMUSA00001-K200801074

PATIENT
  Sex: Female

DRUGS (2)
  1. SEPTRA [Suspect]
  2. ARANESP [Suspect]
     Indication: BONE MARROW TRANSPLANT

REACTIONS (1)
  - BONE MARROW FAILURE [None]
